FAERS Safety Report 17038037 (Version 2)
Quarter: 2019Q4

REPORT INFORMATION
  Report Type: Spontaneous
  Country: US (occurrence: US)
  Receive Date: 20191115
  Receipt Date: 20191216
  Transmission Date: 20200122
  Serious: Yes (Hospitalization)
  Sender: FDA-Public Use
  Company Number: US-TRIS PHARMA, INC.-19US008608

PATIENT

DRUGS (2)
  1. IBUPROFEN. [Suspect]
     Active Substance: IBUPROFEN
     Indication: PYREXIA
     Dosage: 1.875 MILLILITER
     Route: 048
  2. IBUPROFEN. [Suspect]
     Active Substance: IBUPROFEN
     Dosage: 1.875 MILLILITER
     Route: 048
     Dates: start: 20191021

REACTIONS (5)
  - Dehydration [Recovered/Resolved]
  - Dysuria [Recovered/Resolved]
  - Vomiting [Recovered/Resolved]
  - Renal disorder [Recovered/Resolved]
  - Diarrhoea [Recovered/Resolved]

NARRATIVE: CASE EVENT DATE: 20191105
